FAERS Safety Report 15425485 (Version 1)
Quarter: 2018Q3

REPORT INFORMATION
  Report Type: Spontaneous
  Country: US (occurrence: US)
  Receive Date: 20180917
  Receipt Date: 20180917
  Transmission Date: 20181010
  Serious: Yes (Hospitalization, Other)
  Sender: FDA-Public Use
  Company Number: None

PATIENT
  Age: 76 Year
  Sex: Male
  Weight: 89.99 kg

DRUGS (1)
  1. APIXABAN [Suspect]
     Active Substance: APIXABAN
     Indication: ATRIAL FIBRILLATION
     Route: 048
     Dates: start: 20180601, end: 20180611

REACTIONS (4)
  - Anaemia [None]
  - Gastrointestinal erosion [None]
  - Melaena [None]
  - Gastric haemorrhage [None]

NARRATIVE: CASE EVENT DATE: 20180611
